FAERS Safety Report 9696356 (Version 1)
Quarter: 2013Q4

REPORT INFORMATION
  Report Type: Spontaneous
  Country: US (occurrence: US)
  Receive Date: 20131119
  Receipt Date: 20131119
  Transmission Date: 20140711
  Serious: No
  Sender: FDA-Public Use
  Company Number: US-TEVA-394697USA

PATIENT
  Sex: 0

DRUGS (1)
  1. OXALIPLATIN INJECTION 50MG/10 ML+100MG/20ML [Suspect]
     Dosage: 150MG/50ML

REACTIONS (4)
  - Wheezing [Unknown]
  - Nausea [Unknown]
  - Chills [Unknown]
  - Hypertension [Unknown]
